FAERS Safety Report 17564301 (Version 1)
Quarter: 2020Q1

REPORT INFORMATION
  Report Type: Spontaneous
  Country: US (occurrence: US)
  Receive Date: 20200320
  Receipt Date: 20200320
  Transmission Date: 20200409
  Serious: Yes (Hospitalization)
  Sender: FDA-Public Use
  Company Number: US-ROCHE-2566194

PATIENT
  Age: 21 Year
  Sex: Female

DRUGS (1)
  1. TAMIFLU [Suspect]
     Active Substance: OSELTAMIVIR PHOSPHATE
     Indication: INFLUENZA
     Dosage: ONGOING UNKNOWN
     Route: 065
     Dates: start: 20200221

REACTIONS (3)
  - Hypotension [Unknown]
  - Syncope [Unknown]
  - Head injury [Unknown]

NARRATIVE: CASE EVENT DATE: 20200221
